FAERS Safety Report 21670406 (Version 2)
Quarter: 2022Q4

REPORT INFORMATION
  Report Type: Spontaneous
  Country: IT (occurrence: IT)
  Receive Date: 20221201
  Receipt Date: 20221216
  Transmission Date: 20230113
  Serious: Yes (Other)
  Sender: FDA-Public Use
  Company Number: IT-TEVA-2022-IT-2830949

PATIENT
  Age: 67 Year
  Sex: Male

DRUGS (6)
  1. SORAFENIB [Suspect]
     Active Substance: SORAFENIB
     Indication: Metastatic malignant melanoma
     Dosage: FOUR CONSECUTIVE COURSES
     Route: 065
  2. PREDNISONE [Suspect]
     Active Substance: PREDNISONE
     Indication: Acquired haemophilia
     Dosage: INITIALLY SLOWLY TAPERED, LATER RESUMED AT 1MG/KG AND EVENTUALLY DISCONTINUED
     Route: 048
  3. FOTEMUSTINE [Suspect]
     Active Substance: FOTEMUSTINE
     Indication: Metastatic malignant melanoma
     Dosage: FOUR CONSECUTIVE COURSES
     Route: 065
  4. CYCLOPHOSPHAMIDE [Suspect]
     Active Substance: CYCLOPHOSPHAMIDE
     Indication: Metastatic malignant melanoma
     Dosage: FOUR CONSECUTIVE COURSES
     Route: 065
  5. NOVOSEVEN [Suspect]
     Active Substance: COAGULATION FACTOR VIIA RECOMBINANT HUMAN
     Indication: Acquired haemophilia
     Dosage: 90MICROG/KG EVERY 2H (4 DOSES) AND THEN EVERY 4H FOR A TOTAL OF 6DOSES
     Route: 065
  6. NIVOLUMAB [Suspect]
     Active Substance: NIVOLUMAB
     Indication: Metastatic malignant melanoma
     Dosage: 17.1429 MILLIGRAM DAILY;
     Route: 041

REACTIONS (2)
  - Acquired haemophilia [Recovered/Resolved]
  - Drug ineffective [Unknown]
